FAERS Safety Report 16652923 (Version 1)
Quarter: 2019Q3

REPORT INFORMATION
  Report Type: Spontaneous
  Country: US (occurrence: US)
  Receive Date: 20190731
  Receipt Date: 20190731
  Transmission Date: 20191004
  Serious: Yes (Other)
  Sender: FDA-Public Use
  Company Number: US-GLAXOSMITHKLINE-US2019134771

PATIENT
  Sex: Female

DRUGS (2)
  1. ADVAIR DISKUS [Suspect]
     Active Substance: FLUTICASONE PROPIONATE\SALMETEROL XINAFOATE
     Indication: ASTHMA
     Dosage: 1 PUFF(S), BID
     Route: 055
  2. ADVAIR DISKUS [Suspect]
     Active Substance: FLUTICASONE PROPIONATE\SALMETEROL XINAFOATE
     Indication: BRONCHIECTASIS
     Dosage: UNK, 500/50 MCG
     Route: 055

REACTIONS (10)
  - Malaise [Recovered/Resolved]
  - Cough [Unknown]
  - Adrenal insufficiency [Unknown]
  - Asthenia [Not Recovered/Not Resolved]
  - Muscular weakness [Recovered/Resolved]
  - Pyrexia [Recovered/Resolved]
  - Nasal congestion [Unknown]
  - Fatigue [Not Recovered/Not Resolved]
  - Condition aggravated [Unknown]
  - Sputum culture positive [Unknown]
